FAERS Safety Report 13316353 (Version 2)
Quarter: 2017Q4

REPORT INFORMATION
  Report Type: Spontaneous
  Country: DE (occurrence: DE)
  Receive Date: 20170310
  Receipt Date: 20171104
  Transmission Date: 20180320
  Serious: Yes (Death, Hospitalization, Other)
  Sender: FDA-Public Use
  Company Number: DE-ROCHE-1902017

PATIENT
  Age: 73 Year
  Sex: Female
  Weight: 62 kg

DRUGS (1)
  1. MABTHERA [Suspect]
     Active Substance: RITUXIMAB
     Indication: RHEUMATOID ARTHRITIS
     Route: 042

REACTIONS (8)
  - Sepsis [Fatal]
  - Dysuria [Fatal]
  - Sjogren^s syndrome [Fatal]
  - Hypogammaglobulinaemia [Fatal]
  - Urinary tract infection [Fatal]
  - Vulvitis [Fatal]
  - Immunodeficiency [Fatal]
  - Vulval ulceration [Fatal]

NARRATIVE: CASE EVENT DATE: 201511
